FAERS Safety Report 5974861-9 (Version None)
Quarter: 2008Q4

REPORT INFORMATION
  Report Type: 
  Country: None (occurrence: None)
  Receive Date: 20081202
  Receipt Date: 20081124
  Transmission Date: 20090506
  Serious: Yes (Life-Threatening, Other)
  Sender: FDA-Public Use
  Company Number: GB-PFIZER INC-2008094524

PATIENT
  Sex: Female

DRUGS (2)
  1. CHAMPIX [Suspect]
     Indication: SMOKING CESSATION THERAPY
     Route: 048
  2. PALUDRINE [Suspect]
     Indication: MALARIA PROPHYLAXIS

REACTIONS (2)
  - LOSS OF CONSCIOUSNESS [None]
  - PANCREATITIS ACUTE [None]
